FAERS Safety Report 7239545-8 (Version None)
Quarter: 2011Q1

REPORT INFORMATION
  Report Type: 
  Country: None (occurrence: None)
  Receive Date: 20110121
  Receipt Date: 20100125
  Transmission Date: 20110831
  Serious: No
  Sender: FDA-Public Use
  Company Number: US-PFIZER INC-2010010476

PATIENT
  Sex: Female

DRUGS (2)
  1. PROCARDIA [Suspect]
  2. KLONOPIN [Concomitant]

REACTIONS (1)
  - DIZZINESS [None]
